FAERS Safety Report 9707775 (Version 1)
Quarter: 2013Q4

REPORT INFORMATION
  Report Type: Report from Study
  Country: JP (occurrence: JP)
  Receive Date: 20131125
  Receipt Date: 20131125
  Transmission Date: 20140711
  Serious: Yes (Hospitalization)
  Sender: FDA-Public Use
  Company Number: JP-ASTELLAS-2013JP012957

PATIENT
  Age: 76 Year
  Sex: Male

DRUGS (3)
  1. MIRABEGRON [Suspect]
     Indication: HYPERTONIC BLADDER
     Dosage: 25 MG, UID/QD
     Route: 048
     Dates: start: 20121221, end: 2013
  2. MIRABEGRON [Suspect]
     Dosage: 50 MG, UID/QD
     Route: 048
     Dates: start: 20121102, end: 20121220
  3. HARNAL [Concomitant]
     Indication: BENIGN PROSTATIC HYPERPLASIA
     Dosage: 0.2 MG, UNKNOWN/D
     Route: 048

REACTIONS (2)
  - Prostatitis [Recovered/Resolved]
  - Constipation [Recovered/Resolved]
